FAERS Safety Report 17294820 (Version 2)
Quarter: 2022Q4

REPORT INFORMATION
  Report Type: Spontaneous
  Country: GR (occurrence: GR)
  Receive Date: 20200121
  Receipt Date: 20221111
  Transmission Date: 20230113
  Serious: Yes (Other)
  Sender: FDA-Public Use
  Company Number: GR-NOVARTISPH-NVSC2020GR012691

PATIENT
  Age: 45 Year
  Sex: Male

DRUGS (1)
  1. SECUKINUMAB [Suspect]
     Active Substance: SECUKINUMAB
     Indication: Psoriasis
     Dosage: UNK, UNKNOWN
     Route: 065

REACTIONS (1)
  - Myelitis transverse [Recovering/Resolving]
